FAERS Safety Report 5367577-3 (Version None)
Quarter: 2007Q2

REPORT INFORMATION
  Report Type: 
  Country: None (occurrence: None)
  Receive Date: 20070622
  Receipt Date: 20061108
  Transmission Date: 20071010
  Serious: No
  Sender: FDA-Public Use
  Company Number: US-ASTRAZENECA-2006UW22540

PATIENT
  Age: 5 Year
  Sex: Male

DRUGS (4)
  1. PULMICORT RESPULES [Suspect]
     Indication: HYPERSENSITIVITY
     Route: 055
     Dates: start: 20061107
  2. XOPENEX [Concomitant]
  3. ZYRTEC [Concomitant]
  4. SINGULAIR [Concomitant]

REACTIONS (2)
  - SWELLING FACE [None]
  - URTICARIA [None]
